FAERS Safety Report 4958511-6 (Version None)
Quarter: 2006Q1

REPORT INFORMATION
  Report Type: 
  Country: None (occurrence: None)
  Receive Date: 20060130
  Receipt Date: 20050601
  Transmission Date: 20060701
  Serious: Yes (Other)
  Sender: FDA-Public Use
  Company Number: 142265USA

PATIENT
  Age: 47 Year
  Sex: Female

DRUGS (5)
  1. COPAXONE [Suspect]
     Indication: MULTIPLE SCLEROSIS
     Dosage: 20 MILLIGRAM QD SUBCUTANEOUS
     Route: 058
     Dates: start: 20031001
  2. ZOLOFT [Concomitant]
  3. SYNTHROID [Concomitant]
  4. LOPID [Concomitant]
  5. BIRTH CONTROL PILLS [Concomitant]

REACTIONS (1)
  - LIPOATROPHY [None]
